FAERS Safety Report 18252292 (Version 1)
Quarter: 2020Q3

REPORT INFORMATION
  Report Type: Spontaneous
  Country: IN (occurrence: IN)
  Receive Date: 20200909
  Receipt Date: 20200909
  Transmission Date: 20201103
  Serious: Yes (Death)
  Sender: FDA-Public Use
  Company Number: None

PATIENT
  Age: 95 Year
  Sex: Male

DRUGS (8)
  1. LISINOPRIL. [Suspect]
     Active Substance: LISINOPRIL
  2. LUPRON DEPOT [Suspect]
     Active Substance: LEUPROLIDE ACETATE
  3. TYLENOL [Suspect]
     Active Substance: ACETAMINOPHEN
  4. METHYLPRDNISOLONE 4MG [Concomitant]
  5. YONSA [Suspect]
     Active Substance: ABIRATERONE ACETATE
     Indication: PROSTATE CANCER
     Route: 048
     Dates: start: 20200314, end: 20200318
  6. FAMOTIDINE 20MG [Suspect]
     Active Substance: FAMOTIDINE
  7. HYDROCODONE/APAP 5/325 [Suspect]
     Active Substance: ACETAMINOPHEN\HYDROCODONE
  8. ASPRIN 81MG [Concomitant]

REACTIONS (1)
  - Disease progression [None]

NARRATIVE: CASE EVENT DATE: 20200901
